FAERS Safety Report 9017192 (Version 1)
Quarter: 2013Q1

REPORT INFORMATION
  Report Type: Spontaneous
  Country: EE (occurrence: EE)
  Receive Date: 20130117
  Receipt Date: 20130117
  Transmission Date: 20140127
  Serious: Yes (Hospitalization)
  Sender: FDA-Public Use
  Company Number: EE-TEVA-380287ISR

PATIENT
  Age: 19 Year
  Sex: Female
  Weight: 62 kg

DRUGS (1)
  1. SUMAMED [Suspect]
     Indication: CHLAMYDIAL INFECTION
     Dosage: 1000 MILLIGRAM DAILY;
     Route: 048
     Dates: start: 20121029, end: 20121030

REACTIONS (4)
  - Abortion spontaneous [Recovered/Resolved]
  - Vaginal haemorrhage [Recovered/Resolved]
  - Abdominal pain upper [Recovered/Resolved]
  - Vomiting [Recovered/Resolved]
